FAERS Safety Report 7763397-0 (Version None)
Quarter: 2011Q3

REPORT INFORMATION
  Report Type: 
  Country: None (occurrence: None)
  Receive Date: 20110920
  Receipt Date: 20110914
  Transmission Date: 20111222
  Serious: Yes (Other)
  Sender: FDA-Public Use
  Company Number: JP-B.I. PHARMACEUTICALS,INC./RIDGEFIELD-2011-BP-22272NB

PATIENT
  Age: 57 Year
  Sex: Female

DRUGS (1)
  1. MICARDIS [Suspect]
     Dosage: 40 MG
     Route: 048
     Dates: start: 20040101, end: 20110901

REACTIONS (1)
  - INTERSTITIAL LUNG DISEASE [None]
